FAERS Safety Report 12136028 (Version 1)
Quarter: 2016Q1

REPORT INFORMATION
  Report Type: Spontaneous
  Country: AU (occurrence: AU)
  Receive Date: 20160302
  Receipt Date: 20160302
  Transmission Date: 20160526
  Serious: Yes (Other)
  Sender: FDA-Public Use
  Company Number: AU-HOSPIRA-3193545

PATIENT
  Age: 79 Year
  Sex: Female

DRUGS (2)
  1. PICATO [Suspect]
     Active Substance: INGENOL MEBUTATE
     Indication: ACTINIC KERATOSIS
  2. METHOTREXATE [Suspect]
     Active Substance: METHOTREXATE
     Indication: ALLERGIC GRANULOMATOUS ANGIITIS
     Dosage: WEEKLY

REACTIONS (3)
  - Periorbital oedema [Unknown]
  - Skin reaction [Unknown]
  - Drug interaction [Unknown]
